FAERS Safety Report 8318414-6 (Version None)
Quarter: 2012Q2

REPORT INFORMATION
  Report Type: 
  Country: None (occurrence: None)
  Receive Date: 20120427
  Receipt Date: 20120412
  Transmission Date: 20120825
  Serious: Yes (Hospitalization)
  Sender: FDA-Public Use
  Company Number: JP-WATSON-2012-06430

PATIENT
  Sex: Male

DRUGS (7)
  1. LEVOFLOXACIN [Suspect]
     Indication: CYSTITIS
     Dosage: 500 MG DAILY
     Route: 048
     Dates: start: 20120219, end: 20120221
  2. ASPIRIN [Concomitant]
     Indication: CEREBRAL INFARCTION
     Dosage: 100 MG DAILY
     Route: 048
  3. AMLODIPINE BESYLATE [Concomitant]
     Indication: HYPERTENSION
     Dosage: 2.5 MG DAILY
     Route: 048
  4. RIZE                               /00624801/ [Concomitant]
     Indication: INSOMNIA
     Dosage: 5 MG DAILY
     Route: 048
  5. DEPAS [Concomitant]
     Indication: INSOMNIA
     Dosage: 1.5 MG DAILY
     Route: 048
  6. RAPAFLO [Suspect]
     Indication: BENIGN PROSTATIC HYPERPLASIA
     Dosage: 4 MG BID
     Route: 048
     Dates: start: 20120220
  7. COTRIM [Suspect]
     Indication: CYSTITIS
     Dosage: 4 MG DAILY
     Route: 048
     Dates: start: 20120229, end: 20120302

REACTIONS (1)
  - ALTERED STATE OF CONSCIOUSNESS [None]
